FAERS Safety Report 26007939 (Version 1)
Quarter: 2025Q4

REPORT INFORMATION
  Report Type: Spontaneous
  Country: US (occurrence: US)
  Receive Date: 20251106
  Receipt Date: 20251106
  Transmission Date: 20260117
  Serious: No
  Sender: BRISTOL-MYERS SQUIBB COMPANY
  Company Number: US-BRISTOL-MYERS SQUIBB COMPANY-2025-150918

PATIENT
  Age: 57 Year
  Sex: Female
  Weight: 54.43 kg

DRUGS (4)
  1. ORENCIA [Suspect]
     Active Substance: ABATACEPT
     Indication: Rheumatoid arthritis
     Route: 058
     Dates: start: 202503
  2. MOUNJARO [Concomitant]
     Active Substance: TIRZEPATIDE
     Indication: Attention deficit hyperactivity disorder
  3. EFFEXOR [Concomitant]
     Active Substance: VENLAFAXINE HYDROCHLORIDE
     Indication: Menopausal symptoms
  4. HYDROXYCHLOROQUINE SULFATE [Concomitant]
     Active Substance: HYDROXYCHLOROQUINE SULFATE
     Indication: Arthritis

REACTIONS (9)
  - Rhinalgia [Unknown]
  - Stomatitis [Unknown]
  - Glossodynia [Unknown]
  - Oral pain [Unknown]
  - Tongue ulceration [Unknown]
  - Blister [Unknown]
  - Dry mouth [Unknown]
  - Rhinorrhoea [Unknown]
  - Vulvovaginal pain [Unknown]

NARRATIVE: CASE EVENT DATE: 20250101
